FAERS Safety Report 6398297-4 (Version None)
Quarter: 2009Q4

REPORT INFORMATION
  Report Type: 
  Country: None (occurrence: None)
  Receive Date: 20091007
  Receipt Date: 20090925
  Transmission Date: 20100525
  Serious: Yes (Hospitalization)
  Sender: FDA-Public Use
  Company Number: 230129J09BRA

PATIENT
  Sex: Female

DRUGS (7)
  1. REBIF [Suspect]
     Indication: SECONDARY PROGRESSIVE MULTIPLE SCLEROSIS
     Dosage: 44 MCG, 3 IN 1 WEEKS
     Dates: start: 20050307
  2. AZATHIOPRINE [Concomitant]
  3. OTHER (ALL OTHER THERAPEUTIC PRODUCTS) [Concomitant]
  4. PAMELOR [Concomitant]
  5. SERTRALINE HCL [Concomitant]
  6. RUPINOL (ALL OTHER THERAPEUTIC PRODUCTS) [Concomitant]
  7. RIVOTRIL (CLONAZEPAM) [Concomitant]

REACTIONS (11)
  - ASTHENIA [None]
  - GAIT DISTURBANCE [None]
  - HEADACHE [None]
  - HUNGER [None]
  - INJECTION SITE PAIN [None]
  - MOVEMENT DISORDER [None]
  - NAUSEA [None]
  - PAIN IN EXTREMITY [None]
  - PSYCHIATRIC SYMPTOM [None]
  - PYREXIA [None]
  - WEIGHT INCREASED [None]
